FAERS Safety Report 4658532-7 (Version None)
Quarter: 2005Q2

REPORT INFORMATION
  Report Type: 
  Country: None (occurrence: None)
  Receive Date: 20050511
  Receipt Date: 20050428
  Transmission Date: 20051028
  Serious: Yes (Hospitalization, Other)
  Sender: FDA-Public Use
  Company Number: DE-JNJFOC-20050407137

PATIENT
  Age: 84 Year
  Sex: Female

DRUGS (2)
  1. REMINYL [Suspect]
     Dosage: PATIENT RESTARTED TREATMENT
     Route: 065
  2. REMINYL [Suspect]
     Indication: DEMENTIA
     Route: 065

REACTIONS (3)
  - ABDOMINAL PAIN [None]
  - BRADYCARDIA [None]
  - SICK SINUS SYNDROME [None]
